FAERS Safety Report 10156238 (Version 4)
Quarter: 2014Q2

REPORT INFORMATION
  Report Type: Spontaneous
  Country: TH (occurrence: TH)
  Receive Date: 20140507
  Receipt Date: 20140611
  Transmission Date: 20141212
  Serious: Yes (Hospitalization)
  Sender: FDA-Public Use
  Company Number: TH-ROCHE-1386428

PATIENT
  Sex: Female

DRUGS (10)
  1. RECORMON [Suspect]
     Indication: NEPHROGENIC ANAEMIA
     Route: 058
     Dates: start: 2008, end: 20090308
  2. RECORMON [Suspect]
     Route: 058
     Dates: start: 20090308, end: 20090407
  3. RECORMON [Suspect]
     Route: 058
     Dates: start: 20090407, end: 20110223
  4. RECORMON [Suspect]
     Route: 058
     Dates: start: 20140319, end: 20140417
  5. MIRCERA [Suspect]
     Indication: NEPHROGENIC ANAEMIA
     Route: 058
     Dates: start: 20110223, end: 20110525
  6. MIRCERA [Suspect]
     Route: 058
     Dates: start: 20110525, end: 20110613
  7. MIRCERA [Suspect]
     Dosage: 100MCG ONCE EVERY 2 WEEKS
     Route: 058
     Dates: start: 20110613, end: 20110713
  8. MIRCERA [Suspect]
     Route: 058
     Dates: start: 20110713, end: 20110810
  9. MIRCERA [Suspect]
     Route: 058
     Dates: start: 20110810, end: 20120516
  10. MIRCERA [Suspect]
     Route: 058
     Dates: start: 20120516, end: 20140319

REACTIONS (1)
  - Aplasia pure red cell [Not Recovered/Not Resolved]
